FAERS Safety Report 9263362 (Version 1)
Quarter: 2013Q2

REPORT INFORMATION
  Report Type: Spontaneous
  Country: US (occurrence: None)
  Receive Date: 20130429
  Receipt Date: 20130429
  Transmission Date: 20140414
  Serious: Yes (Disabling)
  Sender: FDA-Public Use
  Company Number: None

PATIENT
  Sex: Male
  Weight: 108.86 kg

DRUGS (3)
  1. LIPITOR [Suspect]
     Indication: BLOOD CHOLESTEROL INCREASED
     Dates: start: 2009, end: 2011
  2. CRESTOR [Suspect]
  3. ZOCOR [Suspect]

REACTIONS (3)
  - Myalgia [None]
  - Confusional state [None]
  - Cognitive disorder [None]
